FAERS Safety Report 22717336 (Version 2)
Quarter: 2024Q1

REPORT INFORMATION
  Report Type: Spontaneous
  Country: CN (occurrence: CN)
  Receive Date: 20230718
  Receipt Date: 20240102
  Transmission Date: 20240410
  Serious: Yes (Other)
  Sender: FDA-Public Use
  Company Number: CN-PFIZER INC-PV202300122749

PATIENT
  Age: 60 Year
  Sex: Female

DRUGS (9)
  1. CISPLATIN [Suspect]
     Active Substance: CISPLATIN
     Indication: Clear cell endometrial carcinoma
     Dosage: 2 CYCLE
  2. CISPLATIN [Suspect]
     Active Substance: CISPLATIN
     Indication: Choriocarcinoma
  3. PACLITAXEL [Suspect]
     Active Substance: PACLITAXEL
     Indication: Clear cell endometrial carcinoma
     Dosage: 2 CYCLE
  4. PACLITAXEL [Suspect]
     Active Substance: PACLITAXEL
     Indication: Choriocarcinoma
     Dosage: 3 CYCLE
  5. PACLITAXEL [Suspect]
     Active Substance: PACLITAXEL
     Dosage: 175 MG/M2, 3-WEEKLY
  6. CARBOPLATIN [Suspect]
     Active Substance: CARBOPLATIN
     Indication: Clear cell endometrial carcinoma
     Dosage: AUG=4, 3 CYCLE
  7. CARBOPLATIN [Suspect]
     Active Substance: CARBOPLATIN
     Indication: Choriocarcinoma
     Dosage: AUG=5, 3-WEEKLY
  8. ETOPOSIDE [Suspect]
     Active Substance: ETOPOSIDE
     Indication: Clear cell endometrial carcinoma
     Dosage: 2 CYCLE
  9. ETOPOSIDE [Suspect]
     Active Substance: ETOPOSIDE
     Indication: Choriocarcinoma
     Dosage: 3 CYCLE

REACTIONS (2)
  - Myelosuppression [Unknown]
  - Nephropathy toxic [Unknown]
